FAERS Safety Report 5020491-5 (Version None)
Quarter: 2006Q2

REPORT INFORMATION
  Report Type: 
  Country: None (occurrence: None)
  Receive Date: 20060602
  Receipt Date: 20060526
  Transmission Date: 20061013
  Serious: Yes (Hospitalization)
  Sender: FDA-Public Use
  Company Number: THQ2006A00455

PATIENT
  Age: 76 Year
  Sex: Female

DRUGS (6)
  1. LANSOPRAZOLE [Suspect]
  2. AZAPROPAZONE [Concomitant]
  3. METHOTREXATE [Concomitant]
  4. FOLIC ACID [Concomitant]
  5. FLUCLOXACILLIN [Concomitant]
  6. BENZYLPENICILLIN [Concomitant]

REACTIONS (1)
  - BONE MARROW FAILURE [None]
